FAERS Safety Report 9358770 (Version 2)
Quarter: 2013Q3

REPORT INFORMATION
  Report Type: Spontaneous
  Country: US (occurrence: US)
  Receive Date: 20130620
  Receipt Date: 20130930
  Transmission Date: 20140515
  Serious: Yes (Hospitalization)
  Sender: FDA-Public Use
  Company Number: US-BAYER-2013-073973

PATIENT
  Age: 72 Year
  Sex: Male
  Weight: 88.44 kg

DRUGS (10)
  1. BAYER GENUINE ASPIRIN ORIGINAL STRENGTH [Suspect]
     Indication: CEREBROVASCULAR ACCIDENT
     Dosage: 81 MG, QD
     Dates: start: 201304
  2. INLYTA [Suspect]
     Indication: RENAL CELL CARCINOMA
     Dosage: 5 MG, BID
     Dates: start: 20130314
  3. ENABLEX [Concomitant]
     Dosage: 7.5 MG, QD
  4. TERAZOSIN [Concomitant]
     Dosage: 2 MG, IN THE EVENING
  5. LEVAQUIN [Concomitant]
     Dosage: 500 MG, QD
  6. DUONEB [Concomitant]
     Dosage: UNK UNK, TID
  7. MUCINEX [Concomitant]
     Dosage: 600 MG, BID
  8. SENOKOT S [DOCUSATE SODIUM,SENNOSIDE A+B] [Concomitant]
  9. PROTONIX [Concomitant]
     Dosage: 40 MG, QD
  10. CLONIDINE [Concomitant]
     Dosage: 0.1 MG, EVERY TWELVE HOURS

REACTIONS (7)
  - Haematemesis [Recovered/Resolved]
  - Pneumonia [Recovering/Resolving]
  - Confusional state [Recovering/Resolving]
  - General physical health deterioration [Recovering/Resolving]
  - Pulmonary congestion [None]
  - Asthenia [Recovered/Resolved]
  - Cough [Recovered/Resolved]
